FAERS Safety Report 4283429-4 (Version None)
Quarter: 2004Q1

REPORT INFORMATION
  Report Type: 
  Country: None (occurrence: None)
  Receive Date: 20040115
  Receipt Date: 20030808
  Transmission Date: 20041129
  Serious: Yes (Death)
  Sender: FDA-Public Use
  Company Number: US-JNJFOC-20030801775

PATIENT
  Age: 68 Year
  Sex: Male

DRUGS (1)
  1. DOXIL [Suspect]
     Indication: HEPATIC NEOPLASM MALIGNANT
     Dosage: 80 MG, 1 IN 3 WEEK. INTRAVENOUS
     Route: 042
     Dates: start: 20030509, end: 20030620

REACTIONS (3)
  - HEPATIC FAILURE [None]
  - MALIGNANT NEOPLASM PROGRESSION [None]
  - RESPIRATORY FAILURE [None]
